FAERS Safety Report 9379091 (Version 1)
Quarter: 2013Q3

REPORT INFORMATION
  Report Type: Spontaneous
  Country: DE (occurrence: DE)
  Receive Date: 20130702
  Receipt Date: 20130702
  Transmission Date: 20140515
  Serious: Yes (Other)
  Sender: FDA-Public Use
  Company Number: PHHY2013DE065255

PATIENT
  Age: 60 Year
  Sex: Female

DRUGS (3)
  1. MYCOPHENOLIC ACID [Suspect]
     Indication: RENAL TRANSPLANT
     Dosage: UNK
  2. TACROLIMUS [Concomitant]
     Indication: RENAL TRANSPLANT
     Dosage: UNK
  3. CORTICOSTEROIDS [Concomitant]
     Dosage: UNK

REACTIONS (15)
  - Cytomegalovirus infection [Recovered/Resolved]
  - Biliary tract infection [Unknown]
  - Cholecystitis infective [Unknown]
  - Cholestasis [Recovered/Resolved]
  - Cholangitis [Unknown]
  - Cytomegalovirus duodenitis [Unknown]
  - Gastric ulcer [Recovering/Resolving]
  - Pyrexia [Unknown]
  - Duodenal ulcer [Unknown]
  - Abdominal pain [Unknown]
  - Jaundice [Unknown]
  - Oedema [Recovered/Resolved]
  - Renal failure [Recovering/Resolving]
  - Pruritus [Unknown]
  - Dyspepsia [Unknown]
